FAERS Safety Report 16746668 (Version 1)
Quarter: 2019Q3

REPORT INFORMATION
  Report Type: Spontaneous
  Country: BE (occurrence: BE)
  Receive Date: 20190827
  Receipt Date: 20190827
  Transmission Date: 20191005
  Serious: Yes (Life-Threatening, Hospitalization)
  Sender: FDA-Public Use
  Company Number: BE-GUERBET-BE-20190013

PATIENT
  Age: 30 Year
  Sex: Male

DRUGS (1)
  1. DOTAREM [Suspect]
     Active Substance: GADOTERATE MEGLUMINE
     Indication: NUCLEAR MAGNETIC RESONANCE IMAGING
     Route: 065
     Dates: start: 20190705, end: 20190705

REACTIONS (5)
  - Anaphylactic shock [Recovered/Resolved]
  - Pneumonia [Recovered/Resolved]
  - Amnesia [Recovered/Resolved]
  - Cardiac arrest [Recovered/Resolved]
  - Pneumothorax [Recovered/Resolved]

NARRATIVE: CASE EVENT DATE: 201907
